FAERS Safety Report 5949467-8 (Version None)
Quarter: 2008Q4

REPORT INFORMATION
  Report Type: 
  Country: None (occurrence: None)
  Receive Date: 20081112
  Receipt Date: 20081104
  Transmission Date: 20090506
  Serious: Yes (Death, Hospitalization, Other)
  Sender: FDA-Public Use
  Company Number: PHBS2008DE06212

PATIENT
  Age: 21 Year

DRUGS (5)
  1. CYCLOSPORINE [Suspect]
     Indication: STEM CELL TRANSPLANT
  2. CYCLOSPORINE [Suspect]
     Indication: PROPHYLAXIS AGAINST GRAFT VERSUS HOST DISEASE
  3. METHYLPREDNISOLONE 16MG TAB [Suspect]
     Indication: ACUTE GRAFT VERSUS HOST DISEASE
  4. STEROIDS NOS [Suspect]
     Indication: CHRONIC GRAFT VERSUS HOST DISEASE
  5. BUDESONIDE [Suspect]
     Indication: CHRONIC GRAFT VERSUS HOST DISEASE
     Dosage: 3 MG, TID
     Route: 048

REACTIONS (5)
  - ACUTE GRAFT VERSUS HOST DISEASE [None]
  - CHRONIC GRAFT VERSUS HOST DISEASE [None]
  - EOSINOPHILIA [None]
  - PNEUMONIA BACTERIAL [None]
  - SYSTEMIC MYCOSIS [None]
